FAERS Safety Report 14054694 (Version 7)
Quarter: 2018Q4

REPORT INFORMATION
  Report Type: Report from Study
  Country: GB (occurrence: GB)
  Receive Date: 20171006
  Receipt Date: 20181003
  Transmission Date: 20190204
  Serious: Yes (Hospitalization, Other)
  Sender: FDA-Public Use
  Company Number: GB-ROCHE-1811535

PATIENT
  Age: 66 Year
  Sex: Male

DRUGS (2)
  1. ESBRIET [Suspect]
     Active Substance: PIRFENIDONE
     Indication: PRODUCT USED FOR UNKNOWN INDICATION
     Route: 065
  2. ESBRIET [Suspect]
     Active Substance: PIRFENIDONE
     Indication: IDIOPATHIC PULMONARY FIBROSIS
     Route: 048
     Dates: start: 20160101

REACTIONS (33)
  - Decreased appetite [Unknown]
  - Cough [Recovering/Resolving]
  - Oxygen saturation decreased [Unknown]
  - Gastrooesophageal reflux disease [Unknown]
  - Depression [Unknown]
  - Abdominal discomfort [Unknown]
  - Pain [Unknown]
  - Ageusia [Unknown]
  - Gastrointestinal sounds abnormal [Unknown]
  - Infection [Unknown]
  - Productive cough [Unknown]
  - Lower respiratory tract congestion [Unknown]
  - Total lung capacity abnormal [Unknown]
  - Dyspnoea [Unknown]
  - Abdominal distension [Unknown]
  - Sputum increased [Unknown]
  - Immunosuppression [Unknown]
  - Photopsia [Unknown]
  - Lower respiratory tract infection [Recovered/Resolved]
  - Gastric disorder [Unknown]
  - Weight decreased [Unknown]
  - Fatigue [Unknown]
  - Fall [Unknown]
  - Malaise [Unknown]
  - Musculoskeletal stiffness [Unknown]
  - Nausea [Recovering/Resolving]
  - Catarrh [Unknown]
  - Transient ischaemic attack [Unknown]
  - Migraine [Unknown]
  - Immunodeficiency [Unknown]
  - Nasopharyngitis [Recovered/Resolved]
  - Arthralgia [Unknown]
  - Abdominal discomfort [Unknown]

NARRATIVE: CASE EVENT DATE: 20160719
